FAERS Safety Report 5699645-0 (Version None)
Quarter: 2008Q2

REPORT INFORMATION
  Report Type: 
  Country: None (occurrence: None)
  Receive Date: 20080410
  Receipt Date: 20080401
  Transmission Date: 20081010
  Serious: Yes (Other)
  Sender: FDA-Public Use
  Company Number: PHHY2008JP04572

PATIENT

DRUGS (1)
  1. SANDOSTATIN [Suspect]
     Dosage: 300 UG/DAY
     Route: 042
     Dates: start: 20080330

REACTIONS (1)
  - HYPONATRAEMIA [None]
